FAERS Safety Report 16909165 (Version 1)
Quarter: 2019Q4

REPORT INFORMATION
  Report Type: Spontaneous
  Country: US (occurrence: US)
  Receive Date: 20191011
  Receipt Date: 20191011
  Transmission Date: 20200122
  Serious: Yes (Hospitalization, Other)
  Sender: FDA-Public Use
  Company Number: US-PROCTER+GAMBLE-GS19105869

PATIENT
  Age: 65 Year
  Sex: Female

DRUGS (1)
  1. VICKS VAPORUB [Suspect]
     Active Substance: CAMPHOR (SYNTHETIC)\EUCALYPTUS OIL\MENTHOL
     Indication: NASAL CONGESTION
     Dosage: FINGERTIP FULL
     Route: 045

REACTIONS (5)
  - Computerised tomogram abnormal [Unknown]
  - Pulmonary granuloma [Recovered/Resolved]
  - Product use in unapproved indication [Unknown]
  - Incorrect route of product administration [Unknown]
  - Exposure via inhalation [Unknown]
